FAERS Safety Report 14583233 (Version 1)
Quarter: 2018Q1

REPORT INFORMATION
  Report Type: Report from Study
  Country: US (occurrence: US)
  Receive Date: 20180228
  Receipt Date: 20180228
  Transmission Date: 20180509
  Serious: No
  Sender: FDA-Public Use
  Company Number: US-SHIRE-US201807530

PATIENT
  Age: 59 Year
  Sex: Female

DRUGS (1)
  1. NATPARA (PARATHYROID HORMONE) [Suspect]
     Active Substance: PARATHYROID HORMONE
     Indication: HYPOPARATHYROIDISM
     Dosage: 50 ?G, 1X/DAY:QD
     Route: 065
     Dates: start: 20180222

REACTIONS (5)
  - Aphasia [Recovered/Resolved]
  - Abdominal pain upper [Unknown]
  - Nausea [Unknown]
  - Laryngitis [Unknown]
  - Blood calcium decreased [Unknown]

NARRATIVE: CASE EVENT DATE: 20180222
